FAERS Safety Report 9544263 (Version 2)
Quarter: 2013Q3

REPORT INFORMATION
  Report Type: Report from Study
  Country: US (occurrence: US)
  Receive Date: 20130923
  Receipt Date: 20130923
  Transmission Date: 20140515
  Serious: Yes (Other)
  Sender: FDA-Public Use
  Company Number: US-MERCK-1304USA002465

PATIENT
  Age: 57 Year
  Sex: Male
  Weight: 83.4 kg

DRUGS (16)
  1. RIBAVIRIN [Suspect]
     Indication: HEPATITIS C
     Dosage: 600 MG, BID
     Route: 048
     Dates: start: 20130304, end: 20130416
  2. RIBAVIRIN [Suspect]
     Dosage: UNK
     Route: 048
     Dates: start: 20130418
  3. PEGINTRON [Suspect]
     Indication: HEPATITIS C
     Dosage: 96 MICROGRAM, QW
     Route: 058
     Dates: start: 20130304
  4. VICTRELIS [Suspect]
     Indication: HEPATITIS C
     Dosage: 800 MG, TID
     Route: 048
     Dates: start: 20130403
  5. REYATAZ [Concomitant]
     Indication: HIV INFECTION
     Dosage: UNK, QD
     Route: 048
     Dates: start: 2003
  6. ATAZANAVIR [Concomitant]
  7. NORVIR [Concomitant]
  8. EPZICOM [Concomitant]
  9. ASPIRIN [Concomitant]
  10. ZOLOFT [Concomitant]
  11. PROVIGIL [Concomitant]
  12. MARINOL [Concomitant]
  13. LOPERAMIDE HYDROCHLORIDE [Concomitant]
  14. CIALIS [Concomitant]
  15. RAMIPRIL [Concomitant]
  16. METROGEL (METRONIDAZOLE) [Concomitant]

REACTIONS (2)
  - Lymphopenia [Recovered/Resolved]
  - Hyperbilirubinaemia [Recovered/Resolved]
